FAERS Safety Report 17677272 (Version 4)
Quarter: 2020Q3

REPORT INFORMATION
  Report Type: Report from Study
  Country: US (occurrence: US)
  Receive Date: 20200416
  Receipt Date: 20200730
  Transmission Date: 20201102
  Serious: Yes (Hospitalization)
  Sender: FDA-Public Use
  Company Number: US-ACTELION-A-NJ2020-204196

PATIENT
  Age: 45 Year
  Sex: Female

DRUGS (16)
  1. OPSUMIT [Suspect]
     Active Substance: MACITENTAN
     Indication: PULMONARY ARTERIAL HYPERTENSION
     Dosage: 10 MG, QD
     Route: 048
     Dates: start: 20160628
  2. ALLOPURINOL. [Concomitant]
     Active Substance: ALLOPURINOL
  3. FERROUS SULFATE. [Concomitant]
     Active Substance: FERROUS SULFATE
  4. TYLENOL [Concomitant]
     Active Substance: ACETAMINOPHEN
  5. INSULIN, REGULAR [Concomitant]
     Active Substance: INSULIN NOS
  6. WARFARIN [Concomitant]
     Active Substance: WARFARIN
  7. KEPPRA [Concomitant]
     Active Substance: LEVETIRACETAM
  8. COREG [Concomitant]
     Active Substance: CARVEDILOL
  9. TRAMADOL. [Concomitant]
     Active Substance: TRAMADOL
  10. OPSUMIT [Suspect]
     Active Substance: MACITENTAN
     Dosage: 10 MG, QD
     Route: 048
     Dates: start: 201910
  11. HYDRALAZINE [Concomitant]
     Active Substance: HYDRALAZINE HYDROCHLORIDE
  12. LATANOPROST. [Concomitant]
     Active Substance: LATANOPROST
  13. SYNTHROID [Concomitant]
     Active Substance: LEVOTHYROXINE SODIUM
  14. ASPIRIN (E.C.) [Concomitant]
     Active Substance: ASPIRIN
  15. LIPITOR [Concomitant]
     Active Substance: ATORVASTATIN CALCIUM
  16. ZYRTEC R [Concomitant]
     Active Substance: CETIRIZINE HYDROCHLORIDE

REACTIONS (3)
  - Leg amputation [Recovered/Resolved]
  - Impaired healing [Recovered/Resolved]
  - Pneumonia [Unknown]

NARRATIVE: CASE EVENT DATE: 20200227
